FAERS Safety Report 7384993-9 (Version None)
Quarter: 2011Q1

REPORT INFORMATION
  Report Type: 
  Country: None (occurrence: None)
  Receive Date: 20110330
  Receipt Date: 20110323
  Transmission Date: 20110831
  Serious: Yes (Hospitalization, Other)
  Sender: FDA-Public Use
  Company Number: JP-ABBOTT-11P-087-0706912-00

PATIENT
  Sex: Female

DRUGS (3)
  1. TAKEPRON [Concomitant]
     Indication: HELICOBACTER INFECTION
     Route: 048
     Dates: start: 20100114, end: 20100121
  2. CLARITH TABLETS [Suspect]
     Indication: HELICOBACTER INFECTION
     Route: 048
     Dates: start: 20100114, end: 20100121
  3. SAWACILLIN [Suspect]
     Indication: HELICOBACTER INFECTION
     Route: 048
     Dates: start: 20100114, end: 20100121

REACTIONS (2)
  - LIVER DISORDER [None]
  - ERYTHEMA MULTIFORME [None]
